FAERS Safety Report 6910482-9 (Version None)
Quarter: 2010Q3

REPORT INFORMATION
  Report Type: 
  Country: None (occurrence: None)
  Receive Date: 20100806
  Receipt Date: 20100728
  Transmission Date: 20110219
  Serious: Yes (Hospitalization, Other)
  Sender: FDA-Public Use
  Company Number: US-ASTRAZENECA-2010SE35340

PATIENT
  Sex: Male

DRUGS (1)
  1. SEROQUEL [Suspect]
     Dosage: 115-120 TABLETS
     Route: 048
     Dates: start: 20091101, end: 20091101

REACTIONS (5)
  - ASTHENIA [None]
  - MYOPATHY [None]
  - NEUROPATHY PERIPHERAL [None]
  - OVERDOSE [None]
  - SUICIDE ATTEMPT [None]
